FAERS Safety Report 13251864 (Version 2)
Quarter: 2019Q2

REPORT INFORMATION
  Report Type: Spontaneous
  Country: US (occurrence: US)
  Receive Date: 20170220
  Receipt Date: 20190621
  Transmission Date: 20190711
  Serious: No
  Sender: FDA-Public Use
  Company Number: US-PFIZER INC-2017064403

PATIENT
  Age: 55 Year
  Sex: Female

DRUGS (12)
  1. VERAPAMIL HCL [Suspect]
     Active Substance: VERAPAMIL HYDROCHLORIDE
     Dosage: UNK
  2. TOPAMAX [Suspect]
     Active Substance: TOPIRAMATE
     Dosage: UNK
  3. IMITREX [Suspect]
     Active Substance: SUMATRIPTAN SUCCINATE
     Dosage: UNK
  4. SEROQUEL [Suspect]
     Active Substance: QUETIAPINE FUMARATE
     Dosage: UNK
  5. DEPAKOTE [Suspect]
     Active Substance: DIVALPROEX SODIUM
     Dosage: UNK
  6. FERGON [Suspect]
     Active Substance: FERROUS GLUCONATE
     Dosage: UNK
  7. MECLIZINE [Suspect]
     Active Substance: MECLIZINE HYDROCHLORIDE
     Dosage: UNK
  8. RISPERDAL [Suspect]
     Active Substance: RISPERIDONE
     Dosage: UNK
  9. DURADRIN [Suspect]
     Active Substance: ACETAMINOPHEN\DICHLORALPHENAZONE\ISOMETHEPTENE MUCATE
     Dosage: UNK
  10. FENOFIBRATE. [Suspect]
     Active Substance: FENOFIBRATE
     Dosage: UNK
  11. HYDROCODONE [Suspect]
     Active Substance: HYDROCODONE
     Dosage: UNK
  12. PROPOXYPHENE. [Suspect]
     Active Substance: PROPOXYPHENE
     Dosage: UNK

REACTIONS (2)
  - Rash [Unknown]
  - Drug hypersensitivity [Unknown]
